FAERS Safety Report 8212152 (Version 2)
Quarter: 2012Q4

REPORT INFORMATION
  Report Type: 
  Country: US (occurrence: US)
  Receive Date: 20111029
  Receipt Date: 20120904
  Transmission Date: 20130627
  Serious: No
  Sender: FDA-Public Use
  Company Number: US-AMGEN-USASP2011011802

PATIENT
  Age: 60 Year
  Sex: Female

DRUGS (2)
  1. ENBREL [Suspect]
     Indication: RHEUMATOID ARTHRITIS
     Dosage: 50 mg, qwk
     Dates: start: 20100211
  2. METHOTREXATE [Concomitant]
     Dosage: UNK
     Dates: start: 2009

REACTIONS (5)
  - Therapeutic response decreased [Not Recovered/Not Resolved]
  - Rheumatoid arthritis [Not Recovered/Not Resolved]
  - Red blood cell sedimentation rate increased [Recovered/Resolved]
  - Carpal tunnel syndrome [Unknown]
  - Injection site pain [Not Recovered/Not Resolved]
